FAERS Safety Report 15663188 (Version 1)
Quarter: 2018Q4

REPORT INFORMATION
  Report Type: Spontaneous
  Country: US (occurrence: US)
  Receive Date: 20181128
  Receipt Date: 20181128
  Transmission Date: 20190205
  Serious: No
  Sender: FDA-Public Use
  Company Number: US-SA-2018SA323284

PATIENT
  Age: 38 Year
  Sex: Female

DRUGS (3)
  1. AUBAGIO [Suspect]
     Active Substance: TERIFLUNOMIDE
     Dosage: 14 MG, QD
     Route: 048
     Dates: start: 20170906
  2. VITAMIN D [COLECALCIFEROL] [Concomitant]
  3. POTASSIUM [Concomitant]
     Active Substance: POTASSIUM

REACTIONS (3)
  - Fatigue [Unknown]
  - Loss of personal independence in daily activities [Unknown]
  - Pain [Unknown]
